FAERS Safety Report 24328956 (Version 1)
Quarter: 2024Q3

REPORT INFORMATION
  Report Type: Spontaneous
  Country: JP (occurrence: JP)
  Receive Date: 20240917
  Receipt Date: 20240917
  Transmission Date: 20241017
  Serious: Yes (Other)
  Sender: JOHNSON AND JOHNSON
  Company Number: JP-JNJFOC-20240934307

PATIENT
  Age: 53 Year
  Sex: Male

DRUGS (4)
  1. RISPERDAL [Suspect]
     Active Substance: RISPERIDONE
     Indication: Schizophrenia
     Dosage: IN THE MORNING, AFTERNOON AND EVENING
     Route: 048
  2. RISPERDAL [Suspect]
     Active Substance: RISPERIDONE
     Dosage: IN THE MORNING, AFTERNOON AND EVENING
     Route: 048
     Dates: start: 2014, end: 202406
  3. FLUNITRAZEPAM [Concomitant]
     Active Substance: FLUNITRAZEPAM
     Route: 048
  4. ETIZOLAM [Concomitant]
     Active Substance: ETIZOLAM
     Route: 048

REACTIONS (22)
  - Arrhythmia [Unknown]
  - Alcohol abuse [Unknown]
  - Weight increased [Unknown]
  - Ejaculation disorder [Unknown]
  - Blood triglycerides increased [Unknown]
  - Hyperlipidaemia [Unknown]
  - Thirst [Unknown]
  - Somnolence [Unknown]
  - Apathy [Unknown]
  - Persecutory delusion [Unknown]
  - Depression [Unknown]
  - Dyslalia [Unknown]
  - Dysphagia [Unknown]
  - Renal disorder [Unknown]
  - Gout [Unknown]
  - Diarrhoea [Unknown]
  - Constipation [Unknown]
  - Drooling [Unknown]
  - Anxiety [Unknown]
  - Malaise [Unknown]
  - Drug resistance [Unknown]
  - Off label use [Unknown]
